FAERS Safety Report 22011855 (Version 2)
Quarter: 2023Q1

REPORT INFORMATION
  Report Type: Spontaneous
  Country: US (occurrence: US)
  Receive Date: 20230220
  Receipt Date: 20230309
  Transmission Date: 20230417
  Serious: No
  Sender: FDA-Public Use
  Company Number: US-PFIZER INC-PV202300030400

PATIENT
  Age: 55 Year
  Sex: Female
  Weight: 72.562 kg

DRUGS (1)
  1. PREMARIN [Suspect]
     Active Substance: ESTROGENS, CONJUGATED
     Indication: Hormone replacement therapy
     Dosage: UNK UNK, DAILY (125 A DAY)
     Dates: start: 2022

REACTIONS (1)
  - Memory impairment [Unknown]
